FAERS Safety Report 8128374-9 (Version None)
Quarter: 2012Q1

REPORT INFORMATION
  Report Type: 
  Country: None (occurrence: None)
  Receive Date: 20120210
  Receipt Date: 20120201
  Transmission Date: 20120608
  Serious: Yes (Hospitalization)
  Sender: FDA-Public Use
  Company Number: RU-ROCHE-1026095

PATIENT
  Sex: Male
  Weight: 87 kg

DRUGS (6)
  1. AVASTIN [Suspect]
     Indication: RENAL CANCER
     Route: 042
     Dates: start: 20091021, end: 20111214
  2. INTERFERON ALFA [Suspect]
     Indication: RENAL CANCER
     Route: 058
     Dates: start: 20091021
  3. CAPTOPRIL [Concomitant]
     Indication: HYPERTENSION
     Dates: start: 20091115
  4. INTERFERON ALFA [Suspect]
     Route: 058
     Dates: start: 20100407, end: 20101129
  5. ZOLEDRONOC ACID [Suspect]
     Indication: RENAL CANCER
     Route: 065
     Dates: start: 20090901, end: 20111114
  6. METOCLOPRAMIDE [Concomitant]
     Indication: HYPERTENSION
     Dates: start: 20091115

REACTIONS (1)
  - LYMPHADENITIS [None]
